FAERS Safety Report 9846351 (Version 2)
Quarter: 2014Q1

REPORT INFORMATION
  Report Type: Report from Study
  Country: CA (occurrence: CA)
  Receive Date: 20140127
  Receipt Date: 20140220
  Transmission Date: 20141002
  Serious: Yes (Life-Threatening, Hospitalization)
  Sender: FDA-Public Use
  Company Number: CA-BRISTOL-MYERS SQUIBB COMPANY-20046082

PATIENT
  Age: 72 Year
  Sex: Female

DRUGS (6)
  1. ORENCIA [Suspect]
     Indication: RHEUMATOID ARTHRITIS
     Dosage: 1DF:750
     Dates: start: 20120817
  2. WARFARIN SODIUM [Suspect]
  3. PLAQUENIL [Concomitant]
  4. ALENDRONATE [Concomitant]
  5. PANTOPRAZOLE [Concomitant]
  6. DILTIAZEM HCL [Concomitant]

REACTIONS (3)
  - Haemorrhage [Unknown]
  - Liver disorder [Unknown]
  - Bacterial infection [Unknown]
